FAERS Safety Report 18619524 (Version 3)
Quarter: 2020Q4

REPORT INFORMATION
  Report Type: Spontaneous
  Country: BR (occurrence: BR)
  Receive Date: 20201215
  Receipt Date: 20201230
  Transmission Date: 20210114
  Serious: Yes (Other)
  Sender: FDA-Public Use
  Company Number: BR-IPSEN BIOPHARMACEUTICALS, INC.-2018-14075

PATIENT
  Age: 65 Year
  Sex: Female

DRUGS (9)
  1. SOMATULINE AUTOGEL [Suspect]
     Active Substance: LANREOTIDE ACETATE
     Indication: ACROMEGALY
     Dosage: BUTTOCKS (RIGHT SIDE)
     Route: 058
     Dates: start: 2016
  2. VITAMIN D [Concomitant]
     Active Substance: VITAMIN D NOS
     Indication: HYPOVITAMINOSIS
     Dosage: FOR 11 YEARS (1 TABLET/WEEK)
     Route: 048
  3. DICLOFENAC [Suspect]
     Active Substance: DICLOFENAC
     Indication: HEADACHE
     Dosage: 1 CP
     Route: 065
  4. ALGINAC [Suspect]
     Active Substance: CYANOCOBALAMIN\DICLOFENAC SODIUM\PYRIDOXINE HYDROCHLORIDE\THIAMINE MONONITRATE
     Indication: PRODUCT USED FOR UNKNOWN INDICATION
     Dates: start: 20201206
  5. LOSARTAN POTASSIUM. [Concomitant]
     Active Substance: LOSARTAN POTASSIUM
     Indication: HYPERTENSION
     Dosage: 2 TABLETS PER DAY FOR ELEVEN YEARS
     Route: 048
  6. DOSTINEX [Concomitant]
     Active Substance: CABERGOLINE
     Indication: BLOOD GROWTH HORMONE
     Dosage: 2 TABLETS PER WEEK FOR 11 YEARS
     Route: 048
  7. GLIFAGE [Concomitant]
     Active Substance: METFORMIN HYDROCHLORIDE
     Indication: GLUCOSE TOLERANCE IMPAIRED
     Dosage: 2 TABLETS PER DAY FOR ELEVEN YEARS
     Route: 048
  8. CARBAMAZEPINE. [Concomitant]
     Active Substance: CARBAMAZEPINE
     Indication: SEIZURE
     Dosage: 2 TABLETS PER DAY FOR ELEVEN YEARS
     Route: 048
  9. VELIJA [Concomitant]
     Active Substance: DULOXETINE HYDROCHLORIDE
     Indication: DEPRESSION
     Dosage: 2 TABLETS PER DAY FOR ELEVEN YEARS
     Route: 048

REACTIONS (31)
  - Arthralgia [Recovering/Resolving]
  - Nausea [Recovered/Resolved]
  - Blood growth hormone increased [Recovered/Resolved]
  - Blood growth hormone abnormal [Unknown]
  - Back pain [Recovering/Resolving]
  - Headache [Recovered/Resolved]
  - Somnolence [Unknown]
  - Deafness [Unknown]
  - Abdominal pain [Recovered/Resolved]
  - Injection site nodule [Recovered/Resolved]
  - Fatigue [Unknown]
  - Hyperhidrosis [Recovered/Resolved]
  - Diarrhoea [Recovered/Resolved]
  - Dysentery [Recovering/Resolving]
  - Dizziness [Recovered/Resolved]
  - Arthropathy [Recovered/Resolved]
  - Headache [Recovered/Resolved]
  - Vomiting [Unknown]
  - Bone hypertrophy [Unknown]
  - Hypotension [Recovered/Resolved]
  - Nausea [Unknown]
  - Deformity [Recovered/Resolved]
  - Nephrolithiasis [Unknown]
  - Intervertebral disc protrusion [Recovering/Resolving]
  - Tendonitis [Recovering/Resolving]
  - Syncope [Recovered/Resolved]
  - Injection site pain [Recovered/Resolved]
  - Peripheral swelling [Not Recovered/Not Resolved]
  - Vertebral lesion [Unknown]
  - Injection site extravasation [Recovered/Resolved]
  - Swelling [Recovered/Resolved]

NARRATIVE: CASE EVENT DATE: 2016
